FAERS Safety Report 25521438 (Version 3)
Quarter: 2025Q3

REPORT INFORMATION
  Report Type: Spontaneous
  Country: JP (occurrence: JP)
  Receive Date: 20250706
  Receipt Date: 20250827
  Transmission Date: 20251020
  Serious: Yes (Other)
  Sender: ALEXION PHARMACEUTICALS
  Company Number: JP-ASTRAZENECA-202507JPN000679JP

PATIENT
  Age: 86 Year
  Sex: Female

DRUGS (1)
  1. ULTOMIRIS [Suspect]
     Active Substance: RAVULIZUMAB-CWVZ
     Indication: Paroxysmal nocturnal haemoglobinuria
     Route: 065
     Dates: start: 20250703, end: 20250703

REACTIONS (3)
  - Paroxysmal nocturnal haemoglobinuria [Not Recovered/Not Resolved]
  - Pneumonia [Unknown]
  - Infection [Unknown]
